FAERS Safety Report 6997684 (Version 3)
Quarter: 2013Q2

REPORT INFORMATION
  Report Type: Spontaneous
  Country: JP (occurrence: JP)
  Receive Date: 20090519
  Receipt Date: 20130619
  Transmission Date: 20140414
  Serious: Yes (Other)
  Sender: FDA-Public Use
  Company Number: JP-PFIZER INC-2009211482

PATIENT
  Age: 39 Year
  Sex: Female

DRUGS (4)
  1. DALACIN [Suspect]
     Dosage: 600 MG, DAILY
     Route: 042
  2. ACETAMINOPHEN [Concomitant]
     Dosage: AS NEEDED
  3. CEFTRIAXONE SODIUM [Concomitant]
     Dosage: 1 G, DAILY
  4. MEROPENEM [Concomitant]
     Dosage: 2 G, DAILY

REACTIONS (3)
  - Drug eruption [Recovering/Resolving]
  - Arthralgia [Recovering/Resolving]
  - C-reactive protein increased [Unknown]
